FAERS Safety Report 14194772 (Version 1)
Quarter: 2017Q4

REPORT INFORMATION
  Report Type: Spontaneous
  Country: US (occurrence: None)
  Receive Date: 20171115
  Receipt Date: 20171115
  Transmission Date: 20180321
  Serious: Yes (Hospitalization)
  Sender: FDA-Public Use
  Company Number: None

PATIENT
  Age: 60 Year
  Sex: Female
  Weight: 66.7 kg

DRUGS (4)
  1. XELODA [Suspect]
     Active Substance: CAPECITABINE
     Dates: end: 20171107
  2. LEUCOVORIN CALCIUM. [Suspect]
     Active Substance: LEUCOVORIN CALCIUM
     Dates: end: 20170925
  3. ELOXATIN [Concomitant]
     Active Substance: OXALIPLATIN
     Dates: end: 20170619
  4. 5-FLUOROURACIL (5-FU) [Suspect]
     Active Substance: FLUOROURACIL
     Dates: end: 20170925

REACTIONS (8)
  - Abdominal discomfort [None]
  - Nausea [None]
  - Drug dose omission [None]
  - Ileus [None]
  - Abdominal pain [None]
  - Intestinal obstruction [None]
  - Vomiting [None]
  - Diarrhoea [None]

NARRATIVE: CASE EVENT DATE: 20171107
